FAERS Safety Report 9036288 (Version 2)
Quarter: 2013Q1

REPORT INFORMATION
  Report Type: Spontaneous
  Country: JP (occurrence: None)
  Receive Date: 20130114
  Receipt Date: 20130321
  Transmission Date: 20140127
  Serious: Yes (Hospitalization)
  Sender: FDA-Public Use
  Company Number: MIN-00899

PATIENT
  Age: 75 Year
  Sex: Female

DRUGS (3)
  1. MINOMYCIN [Suspect]
     Indication: RHEUMATOID ARTHRITIS
     Route: 048
  2. PREDNISOLONE [Concomitant]
  3. SULFASALAZINE [Concomitant]

REACTIONS (4)
  - Pigmentation disorder [None]
  - Myopathy [None]
  - Axonal neuropathy [None]
  - Gait disturbance [None]
